FAERS Safety Report 21465006 (Version 1)
Quarter: 2022Q4

REPORT INFORMATION
  Report Type: Report from Study
  Country: US (occurrence: US)
  Receive Date: 20221017
  Receipt Date: 20221017
  Transmission Date: 20230113
  Serious: Yes (Other)
  Sender: FDA-Public Use
  Company Number: US-MYLANLABS-2022M1114522

PATIENT
  Sex: Female

DRUGS (1)
  1. SERTRALINE [Suspect]
     Active Substance: SERTRALINE HYDROCHLORIDE
     Indication: Product used for unknown indication
     Dosage: UNK
     Route: 065

REACTIONS (6)
  - Near death experience [Unknown]
  - Oropharyngeal discomfort [Unknown]
  - Urticaria [Unknown]
  - Dyspnoea [Unknown]
  - Swollen tongue [Unknown]
  - Wrong technique in product usage process [Unknown]
